FAERS Safety Report 6230885-8 (Version None)
Quarter: 2009Q2

REPORT INFORMATION
  Report Type: 
  Country: None (occurrence: None)
  Receive Date: 20090616
  Receipt Date: 20090604
  Transmission Date: 20091009
  Serious: Yes (Hospitalization)
  Sender: FDA-Public Use
  Company Number: PHHY2008MX25699

PATIENT
  Age: 69 Year
  Sex: Female

DRUGS (4)
  1. ACLASTA [Suspect]
     Indication: OSTEOPOROSIS
     Dosage: 5 MG/100 ML
     Dates: start: 20070801
  2. ENALAPRIL [Concomitant]
     Indication: HYPERTENSION
     Dosage: 2 TABLETS PER DAY
     Route: 048
     Dates: start: 20080901
  3. VALSARTAN [Concomitant]
     Indication: HYPERTENSION
     Dosage: 1 TABLET PER DAY
     Route: 048
     Dates: start: 20080901
  4. OMEPRAZOL [Concomitant]
     Indication: GASTRITIS
     Dosage: 1 TABLET PER DAY
     Route: 048
     Dates: start: 20060101

REACTIONS (1)
  - ARRHYTHMIA [None]
